FAERS Safety Report 6262970-9 (Version None)
Quarter: 2009Q3

REPORT INFORMATION
  Report Type: 
  Country: None (occurrence: None)
  Receive Date: 20090710
  Receipt Date: 20090630
  Transmission Date: 20100115
  Serious: Yes (Other)
  Sender: FDA-Public Use
  Company Number: US-JNJCH-2009018240

PATIENT
  Age: 44 Year
  Sex: Male
  Weight: 81.6 kg

DRUGS (1)
  1. VISINE-A [Suspect]
     Indication: OCULAR HYPERAEMIA
     Dosage: TEXT:TWO DROPS IN EACH EYE ONCE EVERY 2 WEEKS
     Route: 047

REACTIONS (1)
  - HYPOAESTHESIA [None]
